FAERS Safety Report 21849101 (Version 2)
Quarter: 2023Q1

REPORT INFORMATION
  Report Type: Report from Study
  Country: PL (occurrence: PL)
  Receive Date: 20230111
  Receipt Date: 20230217
  Transmission Date: 20230418
  Serious: Yes (Hospitalization)
  Sender: FDA-Public Use
  Company Number: PL-EXELIXIS-XL18423059404

PATIENT
  Age: 47 Year
  Sex: Female
  Weight: 47 kg

DRUGS (20)
  1. CABOZANTINIB [Suspect]
     Active Substance: CABOZANTINIB
     Indication: Medullary thyroid cancer
     Dosage: 60 MG, QD
     Route: 048
     Dates: start: 20180310
  2. CABOZANTINIB [Suspect]
     Active Substance: CABOZANTINIB
     Dosage: 20 MG, QD
     Route: 048
  3. GLUCOPHAGE [Concomitant]
     Active Substance: METFORMIN HYDROCHLORIDE
  4. BROMOCRIPTINE MESYLATE [Concomitant]
     Active Substance: BROMOCRIPTINE MESYLATE
  5. EUTHYROX [Concomitant]
     Active Substance: LEVOTHYROXINE SODIUM
  6. Calperos [Concomitant]
  7. ALFACALCIDOL [Concomitant]
     Active Substance: ALFACALCIDOL
  8. VITAMIN D3 [Concomitant]
     Active Substance: CHOLECALCIFEROL
  9. HYDROCHLOROTIAZID [Concomitant]
  10. POTASSIUM CHLORIDE [Concomitant]
     Active Substance: POTASSIUM CHLORIDE
  11. METOPROLOL [Concomitant]
     Active Substance: METOPROLOL
  12. Magne [Concomitant]
  13. OMEPRAZOLE [Concomitant]
     Active Substance: OMEPRAZOLE
  14. ESSENTIALE FORTE [Concomitant]
  15. Vision [Concomitant]
  16. DEBRETIN [Concomitant]
  17. LOPERAMIDE [Concomitant]
     Active Substance: LOPERAMIDE
  18. RINOPANTEINA [Concomitant]
  19. SANPROBI [Concomitant]
  20. FERROUS SULFATE\FOLIC ACID [Concomitant]
     Active Substance: FERROUS SULFATE\FOLIC ACID

REACTIONS (1)
  - Gastritis [Recovered/Resolved]

NARRATIVE: CASE EVENT DATE: 20221207
